FAERS Safety Report 8819407 (Version 1)
Quarter: 2012Q4

REPORT INFORMATION
  Report Type: 
  Country: US (occurrence: None)
  Receive Date: 20121004
  Receipt Date: 20121004
  Transmission Date: 20130627
  Serious: Yes (Hospitalization)
  Sender: FDA-Public Use
  Company Number: None

PATIENT
  Sex: Female
  Weight: 82 kg

DRUGS (6)
  1. BEVACIZUMAB [Suspect]
     Dates: end: 20120321
  2. CARBOPLATIN [Suspect]
     Dates: end: 20120706
  3. PACLITAXEL (TAXOL) [Suspect]
     Dates: end: 20120720
  4. LISINOPRIL [Concomitant]
  5. PROZAC [Concomitant]
  6. VENTOLIN [Concomitant]

REACTIONS (2)
  - Hypokalaemia [None]
  - Postoperative wound infection [None]
